FAERS Safety Report 25113378 (Version 1)
Quarter: 2025Q1

REPORT INFORMATION
  Report Type: Spontaneous
  Country: US (occurrence: None)
  Receive Date: 20250322
  Receipt Date: 20250322
  Transmission Date: 20250408
  Serious: Yes (Disabling)
  Sender: FDA-CTU
  Company Number: None

PATIENT
  Age: 31 Year
  Sex: Female
  Weight: 56.7 kg

DRUGS (6)
  1. CREST 3D WHITE BRILLIANCE [Suspect]
     Active Substance: SODIUM FLUORIDE
     Indication: Dental disorder prophylaxis
     Dates: start: 20250116, end: 20250321
  2. AMPHETAMINE 15G [Concomitant]
  3. NYLIA 1/35 [Concomitant]
     Active Substance: ETHINYL ESTRADIOL\NORETHINDRONE
  4. CLOBETASOL [Concomitant]
     Active Substance: CLOBETASOL
  5. OPZELURA [Concomitant]
     Active Substance: RUXOLITINIB PHOSPHATE
  6. DUPIXENT [Concomitant]
     Active Substance: DUPILUMAB

REACTIONS (8)
  - Lip dry [None]
  - Chapped lips [None]
  - Lip discolouration [None]
  - Oral discomfort [None]
  - Lip swelling [None]
  - Lip disorder [None]
  - Product formulation issue [None]
  - Product advertising issue [None]

NARRATIVE: CASE EVENT DATE: 20250116
